FAERS Safety Report 6734581-X (Version None)
Quarter: 2010Q2

REPORT INFORMATION
  Report Type: 
  Country: None (occurrence: None)
  Receive Date: 20100520
  Receipt Date: 20100510
  Transmission Date: 20101027
  Serious: Yes (Other)
  Sender: FDA-Public Use
  Company Number: AU-GENENTECH-301771

PATIENT
  Age: 81 Year
  Sex: Male

DRUGS (3)
  1. MABTHERA [Suspect]
     Indication: CASTLEMAN'S DISEASE
     Dosage: 375 MG/M2, UNK
     Route: 065
  2. CYCLOPHOSPHAMIDE [Suspect]
     Indication: CASTLEMAN'S DISEASE
     Dosage: 1 G/M2, UNK
     Route: 042
  3. PREDNISOLONE [Suspect]
     Indication: CASTLEMAN'S DISEASE
     Dosage: 100 MG, UNK
     Route: 048

REACTIONS (1)
  - KAPOSI'S SARCOMA [None]
